FAERS Safety Report 6856036-4 (Version None)
Quarter: 2010Q3

REPORT INFORMATION
  Report Type: 
  Country: None (occurrence: None)
  Receive Date: 20100719
  Receipt Date: 20100715
  Transmission Date: 20110219
  Serious: Yes (Other)
  Sender: FDA-Public Use
  Company Number: US-BRISTOL-MYERS SQUIBB COMPANY-15194608

PATIENT
  Age: 69 Year
  Sex: Female

DRUGS (1)
  1. ONGLYZA [Suspect]
     Dates: start: 20100702, end: 20100709

REACTIONS (1)
  - LIVER FUNCTION TEST ABNORMAL [None]
